FAERS Safety Report 10550526 (Version 3)
Quarter: 2014Q4

REPORT INFORMATION
  Report Type: Report from Study
  Country: TR (occurrence: TR)
  Receive Date: 20141029
  Receipt Date: 20141103
  Transmission Date: 20150529
  Serious: Yes (Hospitalization)
  Sender: FDA-Public Use
  Company Number: TR-ROCHE-1478637

PATIENT
  Age: 71 Year
  Sex: Male
  Weight: 70 kg

DRUGS (9)
  1. FILGRASTIM [Concomitant]
     Active Substance: FILGRASTIM
     Dosage: DOSE: 48 MIU/ML
     Route: 058
     Dates: start: 20140804, end: 20140807
  2. FILGRASTIM [Concomitant]
     Active Substance: FILGRASTIM
     Dosage: DOSE: 30 MIU/ML
     Route: 058
     Dates: start: 20140901, end: 20140909
  3. MOXIFLOXACIN HYDROCHLORIDE. [Concomitant]
     Active Substance: MOXIFLOXACIN HYDROCHLORIDE
     Route: 048
     Dates: start: 20140901, end: 20140909
  4. ALLOPURINOL. [Concomitant]
     Active Substance: ALLOPURINOL
     Indication: PROPHYLAXIS
     Route: 048
     Dates: start: 20140628
  5. METHYLPREDNISOLONE. [Concomitant]
     Active Substance: METHYLPREDNISOLONE
     Indication: PROPHYLAXIS
     Route: 042
     Dates: start: 20140701
  6. OBINUTUZUMAB [Suspect]
     Active Substance: OBINUTUZUMAB
     Indication: CHRONIC LYMPHOCYTIC LEUKAEMIA
     Dosage: MOST RECENT DOSE PRIOR TO FEBRILE NEUTROPENIA: 09/SEP/2014
     Route: 042
     Dates: start: 20140701
  7. DEXAMETHASONE. [Concomitant]
     Active Substance: DEXAMETHASONE
     Indication: PROPHYLAXIS
     Route: 042
     Dates: start: 20140701
  8. BENDAMUSTINE [Suspect]
     Active Substance: BENDAMUSTINE
     Indication: CHRONIC LYMPHOCYTIC LEUKAEMIA
     Dosage: MOST RECENT DOSE PRIOR TO FEBRILE NEUTROPENIA: 10/SEP/2014
     Route: 042
     Dates: start: 20140701
  9. VALACYCLOVIR [Concomitant]
     Active Substance: VALACYCLOVIR HYDROCHLORIDE
     Route: 048
     Dates: start: 20140901, end: 20140909

REACTIONS (1)
  - Febrile neutropenia [Recovered/Resolved]

NARRATIVE: CASE EVENT DATE: 20141021
